FAERS Safety Report 6761923-1 (Version None)
Quarter: 2010Q2

REPORT INFORMATION
  Report Type: 
  Country: None (occurrence: None)
  Receive Date: 20100609
  Receipt Date: 20100601
  Transmission Date: 20101027
  Serious: Yes (Hospitalization)
  Sender: FDA-Public Use
  Company Number: US-BAYER-201016269BCC

PATIENT
  Sex: Female

DRUGS (1)
  1. ALEVE (CAPLET) [Suspect]
     Indication: DRUG USE FOR UNKNOWN INDICATION
     Route: 048

REACTIONS (5)
  - GENERALISED ERYTHEMA [None]
  - HYPERSENSITIVITY [None]
  - OBSTRUCTIVE AIRWAYS DISORDER [None]
  - PRURITUS [None]
  - SCRATCH [None]
